FAERS Safety Report 16860947 (Version 1)
Quarter: 2019Q3

REPORT INFORMATION
  Report Type: Spontaneous
  Country: US (occurrence: US)
  Receive Date: 20190927
  Receipt Date: 20190927
  Transmission Date: 20191005
  Serious: Yes (Hospitalization)
  Sender: FDA-Public Use
  Company Number: US-TEVA-2019-US-1112613

PATIENT
  Sex: Male

DRUGS (1)
  1. LEUCOVORIN [FOLINIC ACID] [Suspect]
     Active Substance: LEUCOVORIN
     Dosage: IN MIDDLE OF CYCLE 9
     Route: 065

REACTIONS (4)
  - Lymphocyte count decreased [Unknown]
  - Pyrexia [Unknown]
  - Klebsiella infection [Unknown]
  - Therapy cessation [Unknown]
